FAERS Safety Report 7084694-0 (Version None)
Quarter: 2010Q4

REPORT INFORMATION
  Report Type: 
  Country: None (occurrence: None)
  Receive Date: 20101104
  Receipt Date: 20090907
  Transmission Date: 20110411
  Serious: Yes (Hospitalization)
  Sender: FDA-Public Use
  Company Number: FR-AMGEN-UK353201

PATIENT

DRUGS (2)
  1. NEULASTA [Suspect]
     Indication: CHEMOTHERAPY
     Dosage: 6 MG, UNK
     Route: 065
     Dates: start: 20090613
  2. AMG 102 [Suspect]
     Indication: SMALL CELL LUNG CANCER STAGE UNSPECIFIED
     Dosage: 1170 MG, Q3WK
     Route: 042
     Dates: start: 20090514

REACTIONS (7)
  - ATRIAL FIBRILLATION [None]
  - BACK PAIN [None]
  - HAEMOGLOBIN DECREASED [None]
  - METASTASES TO SPINE [None]
  - SPINAL FRACTURE [None]
  - SYRINGOMYELIA [None]
  - THROMBOCYTOPENIA [None]
